FAERS Safety Report 10202161 (Version 7)
Quarter: 2015Q1

REPORT INFORMATION
  Report Type: Spontaneous
  Country: US (occurrence: US)
  Receive Date: 20140528
  Receipt Date: 20150226
  Transmission Date: 20150720
  Serious: Yes (Hospitalization, Other)
  Sender: FDA-Public Use
  Company Number: US-GLAXOSMITHKLINE-A1074821A

PATIENT
  Sex: Female

DRUGS (7)
  1. FLOLAN [Suspect]
     Active Substance: EPOPROSTENOL SODIUM
     Dosage: 111 NG/KG/MIN, CONCENTRATION 45000 NG/ML, PUMP RATE 67 ML/DAY, VIAL STRENGTH 1.5 MG
     Route: 042
  2. COUMADIN [Concomitant]
     Active Substance: WARFARIN SODIUM
  3. FLOLAN [Suspect]
     Active Substance: EPOPROSTENOL SODIUM
     Indication: PULMONARY HYPERTENSION
     Dosage: UNK
  4. FLOLAN [Suspect]
     Active Substance: EPOPROSTENOL SODIUM
     Indication: COR PULMONALE CHRONIC
     Dosage: 113 NG/KG/MIN, CONCENTRATION 45000 NG/ML, PUMP RATE 69 ML/DAY, VIAL STRENGTH 1.5 MG
     Route: 042
     Dates: start: 20100803
  5. WARFARIN [Concomitant]
     Active Substance: WARFARIN
  6. REVATIO [Concomitant]
     Active Substance: SILDENAFIL CITRATE
  7. FLOLAN [Suspect]
     Active Substance: EPOPROSTENOL SODIUM
     Dosage: 111 NG/KG/MIN, CONCENTRATION 45000 NG/ML, PUMP RATE 67 ML/DAY, VIAL STRENGTH 1.5 MG
     Route: 042

REACTIONS (7)
  - Medical device complication [Unknown]
  - Diarrhoea [Unknown]
  - Headache [Unknown]
  - Hospitalisation [Unknown]
  - Pain [Unknown]
  - Cardiac operation [Unknown]
  - Pyrexia [Unknown]
